FAERS Safety Report 9154804 (Version 1)
Quarter: 2013Q1

REPORT INFORMATION
  Report Type: Spontaneous
  Country: US (occurrence: None)
  Receive Date: 20130308
  Receipt Date: 20130308
  Transmission Date: 20140127
  Serious: Yes (Other)
  Sender: FDA-Public Use
  Company Number: None

PATIENT
  Sex: Female
  Weight: 59.88 kg

DRUGS (1)
  1. NYSTATIN [Suspect]
     Dosage: APPLY OINTMENT TWICE DAILY TO AREA TOPICALLY
     Route: 061

REACTIONS (2)
  - Application site pain [None]
  - Discomfort [None]
